FAERS Safety Report 5611269-X (Version None)
Quarter: 2008Q1

REPORT INFORMATION
  Report Type: 
  Country: None (occurrence: None)
  Receive Date: 20080201
  Receipt Date: 20080122
  Transmission Date: 20080703
  Serious: Yes (Other)
  Sender: FDA-Public Use
  Company Number: DE-PFIZER INC-2007097479

PATIENT
  Sex: Female
  Weight: 57 kg

DRUGS (3)
  1. LYRICA [Suspect]
     Indication: ANXIETY DISORDER
     Route: 048
     Dates: start: 20070920, end: 20071109
  2. TOFRANIL [Concomitant]
  3. MIRTAZAPINE [Concomitant]
     Indication: ANXIETY DISORDER
     Route: 048
     Dates: start: 20070920, end: 20071109

REACTIONS (2)
  - ALANINE AMINOTRANSFERASE INCREASED [None]
  - GAMMA-GLUTAMYLTRANSFERASE INCREASED [None]
